FAERS Safety Report 9981199 (Version 2)
Quarter: 2014Q2

REPORT INFORMATION
  Report Type: Spontaneous
  Country: BE (occurrence: BE)
  Receive Date: 20140307
  Receipt Date: 20140418
  Transmission Date: 20141212
  Serious: Yes (Hospitalization)
  Sender: FDA-Public Use
  Company Number: BE-PFIZER INC-2014063372

PATIENT
  Age: 58 Year
  Sex: Male

DRUGS (1)
  1. PANTOPRAZOLE [Suspect]
     Indication: GASTROOESOPHAGEAL REFLUX DISEASE
     Dosage: 40 MG, 1X/DAY
     Route: 048

REACTIONS (4)
  - Drug ineffective [Unknown]
  - Atrioventricular block first degree [Unknown]
  - Bundle branch block left [Recovered/Resolved]
  - Electrocardiogram repolarisation abnormality [Unknown]
